FAERS Safety Report 17218036 (Version 1)
Quarter: 2019Q4

REPORT INFORMATION
  Report Type: Spontaneous
  Country: DE (occurrence: DE)
  Receive Date: 20191231
  Receipt Date: 20191231
  Transmission Date: 20200122
  Serious: Yes (Congenital Anomaly)
  Sender: FDA-Public Use
  Company Number: DE-TEVA-2019-DE-1159785

PATIENT
  Age: 0 Year
  Sex: Female
  Weight: 3.51 kg

DRUGS (10)
  1. CYTOTEC [Concomitant]
     Active Substance: MISOPROSTOL
     Indication: LABOUR INDUCTION
     Route: 064
  2. NAUSEMA [Concomitant]
     Indication: HYPEREMESIS GRAVIDARUM
     Dosage: 30 [MG/D (3X10) ] / 6 [MG/D (3X2) ] / 12 [?G/D (3X4) ]
     Route: 064
     Dates: start: 20181227, end: 20190104
  3. PARACETAMOL [Concomitant]
     Active Substance: ACETAMINOPHEN
     Indication: PRODUCT USED FOR UNKNOWN INDICATION
     Route: 064
     Dates: start: 20190826, end: 20190826
  4. PARACETAMOL [Concomitant]
     Active Substance: ACETAMINOPHEN
     Indication: HEADACHE
     Dosage: 500 [MG/MTH (BEI BEDARF) ]/ ONCE PER MONTH
     Route: 064
     Dates: start: 20181225, end: 20190826
  5. ONDANSETRON [Concomitant]
     Active Substance: ONDANSETRON
     Indication: HYPEREMESIS GRAVIDARUM
     Dosage: 8 [MG/D (BIS 4) ]
     Route: 064
     Dates: start: 20190221, end: 20190325
  6. LACHGAS [Concomitant]
     Indication: OBSTETRICAL PROCEDURE
     Route: 064
     Dates: start: 20190826, end: 20190826
  7. BUSCOPAN [Concomitant]
     Active Substance: BUTYLSCOPOLAMINE BROMIDE
     Indication: OBSTETRICAL PROCEDURE
     Route: 064
     Dates: start: 20190826, end: 20190826
  8. MICROLAX [Concomitant]
     Indication: CONSTIPATION
     Route: 064
     Dates: start: 20190129, end: 20190212
  9. MCP [Suspect]
     Active Substance: METOCLOPRAMIDE HYDROCHLORIDE
     Indication: HYPEREMESIS GRAVIDARUM
     Dosage: 8D: GW 6+6 TILL 9+3 I.V. , ORAL: GW 8+6,  RECTAL: 4 D, GW 9+1 TIL 10+4
     Route: 064
     Dates: start: 20181228, end: 20190123
  10. GRANISETRON [Concomitant]
     Active Substance: GRANISETRON
     Indication: HYPEREMESIS GRAVIDARUM
     Dosage: 3 [MG/D (BIS 1, BEI BEDARF) ]
     Route: 064
     Dates: start: 20190127, end: 20190218

REACTIONS (1)
  - Aberrant aortic arch [Not Recovered/Not Resolved]
